FAERS Safety Report 22289331 (Version 1)
Quarter: 2023Q2

REPORT INFORMATION
  Report Type: Spontaneous
  Country: CN (occurrence: CN)
  Receive Date: 20230505
  Receipt Date: 20230505
  Transmission Date: 20230722
  Serious: Yes (Other)
  Sender: FDA-Public Use
  Company Number: CN-MYLANLABS-2023M1046671

PATIENT
  Age: 63 Year
  Sex: Male
  Weight: 75 kg

DRUGS (3)
  1. CELEBREX [Suspect]
     Active Substance: CELECOXIB
     Indication: Pain
     Dosage: 0.2 GRAM, BID
     Route: 048
     Dates: start: 20230428, end: 20230429
  2. CELEBREX [Suspect]
     Active Substance: CELECOXIB
     Indication: Intervertebral disc protrusion
  3. CELEBREX [Suspect]
     Active Substance: CELECOXIB
     Indication: Sciatica

REACTIONS (2)
  - Flushing [Recovering/Resolving]
  - Pruritus [Recovering/Resolving]

NARRATIVE: CASE EVENT DATE: 20230429
